FAERS Safety Report 7023081-8 (Version None)
Quarter: 2010Q3

REPORT INFORMATION
  Report Type: 
  Country: None (occurrence: None)
  Receive Date: 20100930
  Receipt Date: 20100922
  Transmission Date: 20110219
  Serious: Yes (Death)
  Sender: FDA-Public Use
  Company Number: RU-PFIZER INC-2010120942

PATIENT
  Age: 64 Year
  Sex: Male
  Weight: 51.3 kg

DRUGS (11)
  1. BLINDED *NO SUBJECT DRUG [Suspect]
     Indication: CARDIAC FAILURE CHRONIC
     Dosage: UNK MG, 1X/DAY
     Route: 048
     Dates: start: 20090417
  2. BLINDED *PLACEBO [Suspect]
     Indication: CARDIAC FAILURE CHRONIC
     Dosage: UNK MG, 1X/DAY
     Route: 048
     Dates: start: 20090417
  3. BLINDED EPLERENONE [Suspect]
     Indication: CARDIAC FAILURE CHRONIC
     Dosage: UNK MG, 1X/DAY
     Route: 048
     Dates: start: 20090417
  4. BLINDED *NO SUBJECT DRUG [Suspect]
     Dosage: UNK
  5. BLINDED *PLACEBO [Suspect]
     Dosage: UNK
  6. BLINDED EPLERENONE [Suspect]
     Dosage: UNK
  7. DIGOXIN [Concomitant]
     Dosage: UNK
     Route: 048
     Dates: start: 20050101
  8. FUROSEMIDE [Concomitant]
     Dosage: UNK
     Route: 048
     Dates: start: 20080401
  9. METOPROLOL [Concomitant]
     Dosage: UNK
     Route: 048
     Dates: start: 20080401
  10. ACETYLSALICYLIC ACID [Concomitant]
     Dosage: UNK
     Route: 048
     Dates: start: 20080301
  11. ENALAPRIL [Concomitant]
     Dosage: UNK
     Route: 048
     Dates: start: 20080401

REACTIONS (1)
  - DEATH [None]
